FAERS Safety Report 20027335 (Version 1)
Quarter: 2021Q4

REPORT INFORMATION
  Report Type: Spontaneous
  Country: US (occurrence: US)
  Receive Date: 20211103
  Receipt Date: 20211103
  Transmission Date: 20220304
  Serious: Yes (Other)
  Sender: FDA-Public Use
  Company Number: US-SA-SAC20211028001204

PATIENT
  Age: 58 Year
  Sex: Male

DRUGS (1)
  1. ZANTAC [Suspect]
     Active Substance: RANITIDINE HYDROCHLORIDE
     Indication: Dyspepsia
     Dosage: QD
     Dates: start: 201008, end: 201711

REACTIONS (4)
  - Hepatic cancer stage IV [Unknown]
  - Hepatic cancer metastatic [Unknown]
  - Colorectal cancer stage IV [Unknown]
  - Colorectal cancer metastatic [Unknown]

NARRATIVE: CASE EVENT DATE: 20170223
